FAERS Safety Report 8144979-3 (Version None)
Quarter: 2012Q1

REPORT INFORMATION
  Report Type: 
  Country: None (occurrence: None)
  Receive Date: 20120214
  Receipt Date: 20120207
  Transmission Date: 20120608
  Serious: Yes (Life-Threatening, Hospitalization, Other)
  Sender: FDA-Public Use
  Company Number: 129039-1

PATIENT
  Age: 58 Year
  Sex: Female
  Weight: 91 kg

DRUGS (3)
  1. CYTARABINE [Suspect]
     Indication: ACUTE MYELOID LEUKAEMIA
     Dosage: 200MG, CONTINOUS, IV NOS
     Route: 042
     Dates: start: 20111116, end: 20111122
  2. DAUNORUBICIN HCL [Suspect]
     Indication: ACUTE MYELOID LEUKAEMIA
     Dosage: 60MG, UID/QD; IV NOS
     Route: 042
     Dates: start: 20111116, end: 20111118
  3. REFER TO CIOMS FORM 2011US007908 (17JAN2012) FOR DETAILS OF THIS EVENT [Concomitant]

REACTIONS (22)
  - GASTRIC HAEMORRHAGE [None]
  - HAEMOGLOBIN DECREASED [None]
  - LETHARGY [None]
  - SINUSITIS [None]
  - ATELECTASIS [None]
  - CONVULSION [None]
  - PNEUMONIA [None]
  - SPLENOMEGALY [None]
  - BACTERIAL TEST POSITIVE [None]
  - PLEURAL EFFUSION [None]
  - PULMONARY OEDEMA [None]
  - SUBDURAL HAEMATOMA [None]
  - LUNG CONSOLIDATION [None]
  - HAEMORRHAGE INTRACRANIAL [None]
  - DEPRESSED LEVEL OF CONSCIOUSNESS [None]
  - MENTAL STATUS CHANGES [None]
  - INTRACRANIAL HYPOTENSION [None]
  - HEPATIC STEATOSIS [None]
  - BACILLUS TEST POSITIVE [None]
  - BRAIN OEDEMA [None]
  - HEART RATE INCREASED [None]
  - ACUTE RESPIRATORY FAILURE [None]
